FAERS Safety Report 10789911 (Version 1)
Quarter: 2015Q1

REPORT INFORMATION
  Report Type: Spontaneous
  Country: US (occurrence: US)
  Receive Date: 20150212
  Receipt Date: 20150212
  Transmission Date: 20150721
  Serious: Yes (Hospitalization)
  Sender: FDA-Public Use
  Company Number: US-ASTRAZENECA-2015SE11689

PATIENT
  Sex: Male

DRUGS (2)
  1. SYNAGIS [Suspect]
     Active Substance: PALIVIZUMAB
     Route: 030
     Dates: start: 20141211
  2. SYNAGIS [Suspect]
     Active Substance: PALIVIZUMAB
     Route: 030
     Dates: start: 20150112

REACTIONS (4)
  - Corona virus infection [Recovering/Resolving]
  - Gastrooesophageal reflux disease [Recovering/Resolving]
  - Enterovirus infection [Recovering/Resolving]
  - Acute respiratory failure [Recovering/Resolving]
